FAERS Safety Report 15808911 (Version 1)
Quarter: 2019Q1

REPORT INFORMATION
  Report Type: Spontaneous
  Country: US (occurrence: US)
  Receive Date: 20190110
  Receipt Date: 20190110
  Transmission Date: 20190417
  Serious: Yes (Other)
  Sender: FDA-Public Use
  Company Number: US-OTSUKA-2018_016996

PATIENT
  Sex: Female

DRUGS (7)
  1. ABILIFY [Suspect]
     Active Substance: ARIPIPRAZOLE
     Indication: AGITATION
  2. ABILIFY [Suspect]
     Active Substance: ARIPIPRAZOLE
     Indication: MAJOR DEPRESSION
     Dosage: 10 MG, QD
     Route: 065
     Dates: start: 201302, end: 201809
  3. ARIPIPRAZOLE. [Concomitant]
     Active Substance: ARIPIPRAZOLE
     Indication: PRODUCT USED FOR UNKNOWN INDICATION
     Dosage: UNK
     Route: 065
     Dates: end: 20160502
  4. ABILIFY [Suspect]
     Active Substance: ARIPIPRAZOLE
     Indication: IRRITABILITY
  5. ABILIFY [Suspect]
     Active Substance: ARIPIPRAZOLE
     Indication: ANXIETY
  6. ABILIFY [Suspect]
     Active Substance: ARIPIPRAZOLE
     Indication: SOCIAL ANXIETY DISORDER
  7. ABILIFY [Suspect]
     Active Substance: ARIPIPRAZOLE
     Indication: BIPOLAR DISORDER

REACTIONS (11)
  - Obsessive-compulsive disorder [Unknown]
  - Stent placement [Recovered/Resolved]
  - Haematocrit increased [Unknown]
  - Compulsive shopping [Not Recovered/Not Resolved]
  - Economic problem [Unknown]
  - Product use in unapproved indication [Unknown]
  - Gambling disorder [Not Recovered/Not Resolved]
  - Divorced [Unknown]
  - Bankruptcy [Unknown]
  - Haemoglobin increased [Unknown]
  - Red blood cell count increased [Unknown]

NARRATIVE: CASE EVENT DATE: 2016
